FAERS Safety Report 10505167 (Version 1)
Quarter: 2014Q4

REPORT INFORMATION
  Report Type: Spontaneous
  Country: FR (occurrence: FR)
  Receive Date: 20141008
  Receipt Date: 20141008
  Transmission Date: 20150528
  Serious: Yes (Hospitalization)
  Sender: FDA-Public Use
  Company Number: PHHY2014FR128756

PATIENT
  Age: 6 Year
  Sex: Male

DRUGS (4)
  1. RITALINE [Suspect]
     Active Substance: METHYLPHENIDATE HYDROCHLORIDE
     Indication: DISTURBANCE IN ATTENTION
     Dosage: UNK UKN, UNK
     Route: 048
     Dates: start: 201402, end: 201406
  2. RITALINE [Suspect]
     Active Substance: METHYLPHENIDATE HYDROCHLORIDE
     Dosage: UNK UKN, UNK
     Route: 048
     Dates: start: 20140904, end: 20140911
  3. RITALINE [Suspect]
     Active Substance: METHYLPHENIDATE HYDROCHLORIDE
     Dosage: UNK UKN, UNK (FOR TWO WEEKS)
     Route: 048
     Dates: start: 201407, end: 201407
  4. RITALINE [Suspect]
     Active Substance: METHYLPHENIDATE HYDROCHLORIDE
     Dosage: UNK UKN, UNK (FOR TWO WEEKS)
     Route: 048
     Dates: start: 201408, end: 201408

REACTIONS (1)
  - Acute generalised exanthematous pustulosis [Not Recovered/Not Resolved]

NARRATIVE: CASE EVENT DATE: 20140911
